FAERS Safety Report 15977966 (Version 3)
Quarter: 2019Q3

REPORT INFORMATION
  Report Type: Spontaneous
  Country: EE (occurrence: EE)
  Receive Date: 20190218
  Receipt Date: 20190904
  Transmission Date: 20191004
  Serious: Yes (Other)
  Sender: FDA-Public Use
  Company Number: EE-SUN PHARMACEUTICAL INDUSTRIES LTD-2019R1-199492

PATIENT
  Age: 32 Year
  Sex: Female

DRUGS (5)
  1. DIGOXIN. [Suspect]
     Active Substance: DIGOXIN
     Dosage: DOSE WAS LOWERED TO 0.25 MG PER DAY
     Route: 065
  2. AMIODARONE [Suspect]
     Active Substance: AMIODARONE
     Indication: TACHYCARDIA FOETAL
     Dosage: 200 MG X 3, UNK
     Route: 065
  3. DIGOXIN. [Suspect]
     Active Substance: DIGOXIN
     Indication: TACHYCARDIA FOETAL
     Dosage: DOSE REPEATEDLY INCREASED UP TO 0.75 MG X 2
     Route: 065
  4. BETAMETHASONE. [Concomitant]
     Active Substance: BETAMETHASONE
     Indication: MATERNAL THERAPY TO ENHANCE FOETAL LUNG MATURITY
     Dosage: UNK
     Route: 065
  5. BETAMETHASONE. [Concomitant]
     Active Substance: BETAMETHASONE
     Dosage: SINGLE DOSE, UNK
     Route: 065

REACTIONS (2)
  - Premature delivery [Unknown]
  - Exposure during pregnancy [Unknown]
